FAERS Safety Report 7883950-3 (Version None)
Quarter: 2011Q4

REPORT INFORMATION
  Report Type: 
  Country: None (occurrence: None)
  Receive Date: 20111102
  Receipt Date: 20111024
  Transmission Date: 20120403
  Serious: Yes (Death)
  Sender: FDA-Public Use
  Company Number: CA-JNJFOC-20110601468

PATIENT
  Age: 3 Month
  Sex: Female
  Weight: 4 kg

DRUGS (5)
  1. PSEUDOEPHEDRINE HCL [Suspect]
     Indication: PRODUCT USED FOR UNKNOWN INDICATION
     Route: 065
  2. CONCENTRATED TYLENOL INFANT DROPS [Suspect]
     Route: 048
  3. CONCENTRATED TYLENOL INFANT DROPS [Suspect]
     Indication: UPPER RESPIRATORY TRACT INFECTION
     Route: 048
  4. PSEUDOEPHEDRINE HCL [Suspect]
     Route: 065
  5. CHLORPHENIRAMINE MALEATE [Suspect]
     Indication: PRODUCT USED FOR UNKNOWN INDICATION
     Route: 065

REACTIONS (6)
  - TOXICITY TO VARIOUS AGENTS [None]
  - DRUG LEVEL ABOVE THERAPEUTIC [None]
  - CYANOSIS [None]
  - SUDDEN DEATH [None]
  - UNRESPONSIVE TO STIMULI [None]
  - BRONCHITIS [None]
